FAERS Safety Report 4785948-0 (Version None)
Quarter: 2005Q3

REPORT INFORMATION
  Report Type: 
  Country: None (occurrence: None)
  Receive Date: 20050930
  Receipt Date: 20050919
  Transmission Date: 20060218
  Serious: Yes (Death)
  Sender: FDA-Public Use
  Company Number: GXKR2005GB01645

PATIENT
  Age: 17 Year
  Sex: Female

DRUGS (4)
  1. MIRTAZAPINE [Suspect]
  2. DILTIAZEM [Suspect]
  3. ACETAMINOPHEN [Suspect]
  4. ZOPICLONE (ZOPICLONE) [Suspect]

REACTIONS (1)
  - COMPLETED SUICIDE [None]
